FAERS Safety Report 17692081 (Version 4)
Quarter: 2020Q3

REPORT INFORMATION
  Report Type: Report from Study
  Country: IN (occurrence: IN)
  Receive Date: 20200422
  Receipt Date: 20200702
  Transmission Date: 20201104
  Serious: Yes (Other)
  Sender: FDA-Public Use
  Company Number: NVSC2020IN019145

PATIENT
  Age: 57 Year
  Sex: Male
  Weight: 91.4 kg

DRUGS (2)
  1. GALVUS [Suspect]
     Active Substance: VILDAGLIPTIN
     Indication: DIABETES MELLITUS
     Dosage: SINCE 1 YEAR
     Route: 048
  2. GALVUS MET [Suspect]
     Active Substance: METFORMIN HYDROCHLORIDE\VILDAGLIPTIN
     Indication: DIABETES MELLITUS
     Dosage: UNK, QD, 50/500, 0?0?1
     Route: 048
     Dates: start: 2019

REACTIONS (7)
  - Product dose omission issue [Unknown]
  - Overweight [Unknown]
  - Hyperglycaemia [Unknown]
  - Metabolic disorder [Unknown]
  - Weight decreased [Unknown]
  - Central obesity [Unknown]
  - Weight loss poor [Unknown]

NARRATIVE: CASE EVENT DATE: 20200321
